FAERS Safety Report 14604032 (Version 2)
Quarter: 2018Q3

REPORT INFORMATION
  Report Type: Spontaneous
  Country: IT (occurrence: IT)
  Receive Date: 20180306
  Receipt Date: 20180731
  Transmission Date: 20181010
  Serious: Yes (Hospitalization)
  Sender: FDA-Public Use
  Company Number: PHHY2018IT035445

PATIENT
  Age: 62 Year
  Sex: Female

DRUGS (1)
  1. METFORMIN [Suspect]
     Active Substance: METFORMIN HYDROCHLORIDE
     Indication: PRODUCT USED FOR UNKNOWN INDICATION
     Dosage: 3000 MG, QD
     Route: 065

REACTIONS (4)
  - Abdominal discomfort [Unknown]
  - Lactic acidosis [Unknown]
  - Cardio-respiratory arrest [Unknown]
  - Urine albumin/creatinine ratio abnormal [Unknown]
